FAERS Safety Report 18979933 (Version 3)
Quarter: 2021Q1

REPORT INFORMATION
  Report Type: Spontaneous
  Country: US (occurrence: US)
  Receive Date: 20210308
  Receipt Date: 20210317
  Transmission Date: 20210420
  Serious: No
  Sender: FDA-Public Use
  Company Number: US-ELI_LILLY_AND_COMPANY-US202103002780

PATIENT
  Age: 68 Year
  Sex: Female

DRUGS (5)
  1. MIRALAX [Concomitant]
     Active Substance: POLYETHYLENE GLYCOL 3350
     Indication: PRODUCT USED FOR UNKNOWN INDICATION
     Dosage: UNK UNK, TID
  2. FORTEO [Suspect]
     Active Substance: TERIPARATIDE
     Indication: OSTEOPENIA
  3. VITAMIN D3 [Concomitant]
     Active Substance: CHOLECALCIFEROL
     Indication: PRODUCT USED FOR UNKNOWN INDICATION
  4. FORTEO [Suspect]
     Active Substance: TERIPARATIDE
     Indication: OSTEOPOROSIS
     Dosage: UNK UNK, DAILY
     Route: 065
     Dates: start: 20210301
  5. CALCIUM [Concomitant]
     Active Substance: CALCIUM
     Indication: PRODUCT USED FOR UNKNOWN INDICATION
     Dosage: UNK

REACTIONS (13)
  - Anxiety [Recovering/Resolving]
  - Heart rate increased [Unknown]
  - Muscular weakness [Unknown]
  - Arthralgia [Recovering/Resolving]
  - Blood pressure increased [Unknown]
  - Pain in extremity [Recovering/Resolving]
  - Bone density decreased [Unknown]
  - Bone disorder [Unknown]
  - Headache [Recovering/Resolving]
  - Blood calcium increased [Unknown]
  - Nausea [Recovering/Resolving]
  - Feeling jittery [Recovering/Resolving]
  - Neck pain [Not Recovered/Not Resolved]

NARRATIVE: CASE EVENT DATE: 20210301
